FAERS Safety Report 4308901-X (Version None)
Quarter: 2004Q1

REPORT INFORMATION
  Report Type: 
  Country: None (occurrence: None)
  Receive Date: 20040302
  Receipt Date: 20040220
  Transmission Date: 20041129
  Serious: Yes (Other)
  Sender: FDA-Public Use
  Company Number: PHEH2004US02195

PATIENT
  Age: 34 Year
  Sex: Male

DRUGS (6)
  1. CLOZARIL [Suspect]
     Indication: SCHIZOPHRENIA
     Dosage: 375 MG/DAY
     Route: 048
     Dates: end: 20040219
  2. CHEMOTHERAPEUTICS,OTHER [Suspect]
     Dosage: UNK, UNK
  3. PROZAC [Concomitant]
  4. COGENTIN [Concomitant]
  5. ATIVAN [Concomitant]
  6. HALDOL [Concomitant]

REACTIONS (3)
  - LEUKOPENIA [None]
  - NEUTROPENIA [None]
  - NON-HODGKIN'S LYMPHOMA [None]
